FAERS Safety Report 19838073 (Version 1)
Quarter: 2021Q3

REPORT INFORMATION
  Report Type: Spontaneous
  Country: DE (occurrence: DE)
  Receive Date: 20210916
  Receipt Date: 20210916
  Transmission Date: 20211014
  Serious: Yes (Hospitalization)
  Sender: FDA-Public Use
  Company Number: DE-TEVA-2021-DE-1951512

PATIENT
  Age: 73 Year
  Sex: Male
  Weight: 74 kg

DRUGS (11)
  1. BUDESONID [Concomitant]
     Active Substance: BUDESONIDE
     Dosage: 800 MICROGRAM DAILY; 1?0?1?0
  2. SIMVASTATIN. [Concomitant]
     Active Substance: SIMVASTATIN
     Dosage: 20 MILLIGRAM DAILY; 0?0?1?0
  3. AZITHROMYCIN ANHYDROUS. [Concomitant]
     Active Substance: AZITHROMYCIN ANHYDROUS
     Dosage: 250 MILLIGRAM DAILY; 1?0?0?0
  4. MIRTAZAPIN [Concomitant]
     Active Substance: MIRTAZAPINE
     Dosage: 15 MILLIGRAM DAILY; 0?0?1?0
  5. BISOPROLOL [Suspect]
     Active Substance: BISOPROLOL
     Dosage: 2.5 MILLIGRAM DAILY; 1?0?0?0
     Route: 065
  6. ACETYLCYSTEIN [Concomitant]
     Active Substance: ACETYLCYSTEINE
     Dosage: 100 MILLIGRAM DAILY; 1?0?0?0
  7. KALIUM [Concomitant]
     Active Substance: POTASSIUM CHLORIDE
     Dosage: 1 DOSAGE FORMS DAILY; 1?0?0?0
  8. COLECALCIFEROL (VITAMIN D) [Concomitant]
     Active Substance: CHOLECALCIFEROL
     Dosage: 1000 IU (INTERNATIONAL UNIT) DAILY; 1?0?0?0
  9. MACROGOL/KALIUMCHLORID/NATRIUMCARBONAT/NATRIUMCHLORID [Concomitant]
     Dosage: 1 DOSAGE FORMS DAILY; 0?1?0?0
  10. MORPHIN [Concomitant]
     Active Substance: MORPHINE
     Dosage: 10 MILLIGRAM DAILY; 1?0?0?0
  11. GLYCOPYRRONIUMBROMID/INDACATEROL [Concomitant]
     Dosage: 1 DOSAGE FORMS DAILY; 85|43 MCG, 1?0?0?0

REACTIONS (11)
  - Anaemia [Unknown]
  - Acute respiratory failure [Unknown]
  - Electrocardiogram abnormal [Unknown]
  - Hyperglycaemia [Unknown]
  - Coronavirus test positive [Unknown]
  - Cough [Unknown]
  - Renal impairment [Unknown]
  - Musculoskeletal pain [Unknown]
  - Condition aggravated [Unknown]
  - Dyspnoea [Unknown]
  - Systemic infection [Unknown]
